FAERS Safety Report 6082448-5 (Version None)
Quarter: 2009Q1

REPORT INFORMATION
  Report Type: 
  Country: None (occurrence: None)
  Receive Date: 20090130
  Receipt Date: 20081015
  Transmission Date: 20090719
  Serious: Yes (Life-Threatening, Hospitalization)
  Sender: FDA-Public Use
  Company Number: 8038007

PATIENT
  Age: 14 Year
  Sex: Female

DRUGS (5)
  1. KEPPRA [Suspect]
     Dosage: 2000 MG/D
  2. KEPPRA [Suspect]
     Dosage: 375 MG/D
  3. ABILIFY [Concomitant]
  4. TOPAMAX [Concomitant]
  5. LAMICTAL [Concomitant]

REACTIONS (3)
  - ANGER [None]
  - CONVULSION [None]
  - SUICIDAL IDEATION [None]
